FAERS Safety Report 18158070 (Version 1)
Quarter: 2020Q3

REPORT INFORMATION
  Report Type: Spontaneous
  Country: IT (occurrence: FR)
  Receive Date: 20200817
  Receipt Date: 20200817
  Transmission Date: 20201103
  Serious: Yes (Hospitalization, Other)
  Sender: FDA-Public Use
  Company Number: FR-JNJFOC-20200808020

PATIENT
  Age: 60 Year
  Sex: Male

DRUGS (1)
  1. CONCERTA [Suspect]
     Active Substance: METHYLPHENIDATE HYDROCHLORIDE
     Indication: DRUG ABUSE
     Dosage: HE WEEKLY SNORTED

REACTIONS (3)
  - Suicidal ideation [Unknown]
  - Incorrect route of product administration [Unknown]
  - Drug abuse [Unknown]
